FAERS Safety Report 9227854 (Version 1)
Quarter: 2013Q2

REPORT INFORMATION
  Report Type: Spontaneous
  Country: ES (occurrence: ES)
  Receive Date: 20130412
  Receipt Date: 20130412
  Transmission Date: 20140414
  Serious: Yes (Other)
  Sender: FDA-Public Use
  Company Number: ES-PFIZER INC-2013112783

PATIENT
  Age: 68 Year
  Sex: Female

DRUGS (6)
  1. TOVIAZ [Suspect]
     Indication: URINARY INCONTINENCE
     Dosage: 4 MG, 1X/DAY
     Dates: start: 201211
  2. OMEPRAZOL [Concomitant]
     Indication: PROPHYLAXIS AGAINST GASTROINTESTINAL ULCER
     Dosage: UNK
  3. ATORVASTATIN [Concomitant]
     Indication: BLOOD CHOLESTEROL
     Dosage: 40 MG, UNK
  4. ENALAPRIL [Concomitant]
     Indication: BLOOD PRESSURE FLUCTUATION
     Dosage: 20 MG, UNK
  5. ADIRO [Concomitant]
     Indication: COAGULOPATHY
     Dosage: UNK
  6. PARACETAMOL [Concomitant]
     Indication: SPINAL FRACTURE
     Dosage: UNK

REACTIONS (1)
  - Vaginal haemorrhage [Unknown]
